FAERS Safety Report 6574174-0 (Version None)
Quarter: 2010Q1

REPORT INFORMATION
  Report Type: 
  Country: None (occurrence: None)
  Receive Date: 20100208
  Receipt Date: 20100108
  Transmission Date: 20100710
  Serious: No
  Sender: FDA-Public Use
  Company Number: US-BAYER-201010487NA

PATIENT
  Age: 73 Year
  Sex: Male

DRUGS (2)
  1. LEVITRA [Suspect]
     Indication: DRUG USE FOR UNKNOWN INDICATION
     Dosage: UNIT DOSE: 20 MG
  2. LEVITRA [Suspect]
     Dosage: UNIT DOSE: 10 MG

REACTIONS (1)
  - DRUG INEFFECTIVE [None]
